FAERS Safety Report 9358358 (Version 1)
Quarter: 2013Q2

REPORT INFORMATION
  Report Type: Spontaneous
  Country: US (occurrence: None)
  Receive Date: 20130619
  Receipt Date: 20130619
  Transmission Date: 20140414
  Serious: Yes (Hospitalization)
  Sender: FDA-Public Use
  Company Number: None

PATIENT
  Age: 63 Year
  Sex: Male
  Weight: 220 kg

DRUGS (2)
  1. OXALIPLATIN [Suspect]
     Indication: PANCREATIC CARCINOMA
     Route: 042
     Dates: start: 20130522, end: 20130605
  2. IRINOTECAN [Suspect]
     Route: 042
     Dates: start: 20130522, end: 20130605

REACTIONS (5)
  - Chills [None]
  - Body temperature increased [None]
  - Hepatic enzyme increased [None]
  - Device occlusion [None]
  - Cholangitis [None]
